FAERS Safety Report 18500090 (Version 1)
Quarter: 2020Q4

REPORT INFORMATION
  Report Type: Report from Study
  Country: None (occurrence: US)
  Receive Date: 20201113
  Receipt Date: 20201113
  Transmission Date: 20210114
  Serious: Yes (Other)
  Sender: FDA-Public Use
  Company Number: US-ABBVIE-20K-163-3393666-00

PATIENT
  Sex: Female

DRUGS (2)
  1. HUMIRA [Suspect]
     Active Substance: ADALIMUMAB
     Indication: RHEUMATOID ARTHRITIS
     Route: 058
  2. HUMIRA [Suspect]
     Active Substance: ADALIMUMAB
     Indication: CROHN^S DISEASE
     Dosage: DOSING SCHEDULE CHANGED
     Route: 058
     Dates: start: 202001

REACTIONS (12)
  - Medical device site ulcer [Unknown]
  - Weight increased [Unknown]
  - Hyperhidrosis [Unknown]
  - Skin exfoliation [Unknown]
  - Dry skin [Unknown]
  - Therapeutic response shortened [Recovering/Resolving]
  - Inflammation [Unknown]
  - Asthenia [Unknown]
  - Skin abrasion [Recovered/Resolved]
  - Headache [Recovered/Resolved]
  - Transfusion [Unknown]
  - Colostomy [Unknown]
